FAERS Safety Report 7910448-6 (Version None)
Quarter: 2011Q4

REPORT INFORMATION
  Report Type: 
  Country: None (occurrence: None)
  Receive Date: 20111111
  Receipt Date: 20111102
  Transmission Date: 20120403
  Serious: Yes (Other)
  Sender: FDA-Public Use
  Company Number: JP-ASTRAZENECA-2011SE66820

PATIENT
  Age: 68 Year
  Sex: Male

DRUGS (4)
  1. PROPOFOL [Suspect]
     Indication: INDUCTION OF ANAESTHESIA
     Route: 042
  2. SEVOFLURANE [Suspect]
     Indication: MAINTENANCE OF ANAESTHESIA
  3. REMIFENTANIL [Suspect]
     Indication: MAINTENANCE OF ANAESTHESIA
  4. ROCURONIUM BROMIDE [Suspect]
     Indication: INDUCTION OF ANAESTHESIA

REACTIONS (1)
  - ANAPHYLACTIC SHOCK [None]
